FAERS Safety Report 5613640-9 (Version None)
Quarter: 2008Q1

REPORT INFORMATION
  Report Type: 
  Country: None (occurrence: None)
  Receive Date: 20080205
  Receipt Date: 20080123
  Transmission Date: 20080703
  Serious: Yes (Other)
  Sender: FDA-Public Use
  Company Number: US-JNJFOC-20080200339

PATIENT
  Age: 67 Year
  Sex: Female

DRUGS (14)
  1. TRAMADOL HCL [Suspect]
     Indication: DRUG USE FOR UNKNOWN INDICATION
     Route: 065
  2. ACETAMINOPHEN [Concomitant]
     Route: 065
  3. CODEINE [Concomitant]
     Route: 065
  4. MORPHINE [Concomitant]
     Route: 065
  5. OXYCODONE [Concomitant]
     Route: 065
  6. DIAZEPAM [Concomitant]
     Route: 065
  7. BUTALBITAL [Concomitant]
     Route: 065
  8. LORAZEPAM [Concomitant]
     Route: 065
  9. AMLODIPINE [Concomitant]
     Route: 065
  10. ATENOLOL [Concomitant]
     Route: 065
  11. FUROSEMIDE [Concomitant]
     Route: 065
  12. RAMIPRIL [Concomitant]
     Route: 065
  13. DIGOXIN [Concomitant]
     Route: 065
  14. IBUPROFEN [Concomitant]
     Route: 065

REACTIONS (3)
  - DRUG ABUSE [None]
  - DRUG DEPENDENCE [None]
  - ROAD TRAFFIC ACCIDENT [None]
